FAERS Safety Report 24386737 (Version 1)
Quarter: 2024Q4

REPORT INFORMATION
  Report Type: Spontaneous
  Country: FR (occurrence: FR)
  Receive Date: 20241002
  Receipt Date: 20241002
  Transmission Date: 20250115
  Serious: Yes (Hospitalization)
  Sender: CELLTRION
  Company Number: None

PATIENT

DRUGS (1)
  1. TRUXIMA [Suspect]
     Active Substance: RITUXIMAB-ABBS
     Indication: Immune thrombocytopenia
     Dosage: UNK
     Route: 042
     Dates: start: 20240311

REACTIONS (4)
  - Lymphadenopathy [Recovering/Resolving]
  - Pyrexia [Recovering/Resolving]
  - Influenza like illness [Recovering/Resolving]
  - Intentional product use issue [Unknown]

NARRATIVE: CASE EVENT DATE: 20240322
